FAERS Safety Report 6318904-1 (Version None)
Quarter: 2009Q3

REPORT INFORMATION
  Report Type: 
  Country: None (occurrence: None)
  Receive Date: 20090821
  Receipt Date: 20080809
  Transmission Date: 20100115
  Serious: No
  Sender: FDA-Public Use
  Company Number: US-ABBOTT-08P-163-0469652-00

PATIENT
  Sex: Female
  Weight: 88.53 kg

DRUGS (11)
  1. NIASPAN [Suspect]
     Indication: BLOOD TRIGLYCERIDES
     Route: 048
     Dates: start: 20080701
  2. FENOFIBRATE [Concomitant]
     Indication: BLOOD CHOLESTEROL
     Route: 048
     Dates: start: 20040101
  3. INEGY [Concomitant]
     Indication: BLOOD CHOLESTEROL
     Dosage: 10/80MG (TOTAL DAILY DOSE) 10/80
     Route: 048
     Dates: start: 20040101
  4. ALENOLOL [Concomitant]
     Indication: BLOOD DISORDER
     Route: 048
  5. AMLODIPINE W/VALSARTAN [Concomitant]
     Indication: BLOOD DISORDER
     Dosage: 10/320
  6. HYDRO CHLORIDE [Concomitant]
     Indication: FLUID RETENTION
     Route: 048
     Dates: start: 20080201
  7. JANUMET [Concomitant]
     Indication: DIABETES MELLITUS
     Route: 048
     Dates: start: 20080601
  8. LANSOPRAZOLE [Concomitant]
     Indication: DYSPEPSIA
     Route: 048
     Dates: start: 20040601
  9. WARFARIN SODIUM [Concomitant]
     Indication: AORTIC VALVE REPLACEMENT
     Route: 048
     Dates: start: 20040101
  10. FISH OIL [Concomitant]
     Indication: DRUG USE FOR UNKNOWN INDICATION
     Route: 048
     Dates: start: 20040101
  11. M.V.I. [Concomitant]
     Indication: DRUG USE FOR UNKNOWN INDICATION
     Route: 048

REACTIONS (3)
  - FLUSHING [None]
  - PRURITUS [None]
  - SKIN BURNING SENSATION [None]
